FAERS Safety Report 8599202-2 (Version None)
Quarter: 2012Q3

REPORT INFORMATION
  Report Type: 
  Country: None (occurrence: None)
  Receive Date: 20120816
  Receipt Date: 20120813
  Transmission Date: 20120928
  Serious: Yes (Other)
  Sender: FDA-Public Use
  Company Number: US-ROCHE-784522

PATIENT
  Sex: Male
  Weight: 63.56 kg

DRUGS (1)
  1. ACCUTANE [Suspect]
     Indication: ACNE
     Route: 065
     Dates: start: 20011101, end: 20020401

REACTIONS (5)
  - APPENDICITIS [None]
  - CROHN'S DISEASE [None]
  - STRESS [None]
  - INFLAMMATORY BOWEL DISEASE [None]
  - COLITIS [None]
